FAERS Safety Report 9449132 (Version 2)
Quarter: 2013Q3

REPORT INFORMATION
  Report Type: Spontaneous
  Country: US (occurrence: US)
  Receive Date: 20130808
  Receipt Date: 20130820
  Transmission Date: 20140515
  Serious: No
  Sender: FDA-Public Use
  Company Number: US-BAXTER-2013BAX029630

PATIENT
  Age: 60 Year
  Sex: Female

DRUGS (3)
  1. DIANEAL LOW CALCIUM [Suspect]
     Indication: PERITONEAL DIALYSIS
     Route: 033
     Dates: start: 201206
  2. DIANEAL LOW CALCIUM [Suspect]
     Indication: PERITONEAL DIALYSIS
     Route: 033
     Dates: start: 201206
  3. INSULIN [Concomitant]
     Indication: BLOOD GLUCOSE INCREASED
     Route: 065

REACTIONS (3)
  - Joint swelling [Recovering/Resolving]
  - Blood glucose increased [Recovering/Resolving]
  - Dehydration [Recovering/Resolving]
